FAERS Safety Report 9294064 (Version 1)
Quarter: 2013Q2

REPORT INFORMATION
  Report Type: Spontaneous
  Country: US (occurrence: None)
  Receive Date: 20130514
  Receipt Date: 20130514
  Transmission Date: 20140414
  Serious: Yes (Other)
  Sender: FDA-Public Use
  Company Number: 001527521A

PATIENT
  Age: 58 Year
  Sex: Female

DRUGS (3)
  1. MB* ANTIOXIDANT DAY CREME SPF 20 [Suspect]
     Dosage: TWICE DAILY DERMAL
     Dates: start: 20130403, end: 20130405
  2. MB* SKIN BRIGHTENING DECOLLETE+NECK TREATMENT SPF 15 [Suspect]
     Dosage: TWICE DAILY DERMAL
     Dates: start: 20130403, end: 20130405
  3. UNDISCLOSED MEDICATIONS [Concomitant]

REACTIONS (5)
  - Lip swelling [None]
  - Rash [None]
  - Urticaria [None]
  - Hypersensitivity [None]
  - Nervousness [None]
